FAERS Safety Report 6035092-X (Version None)
Quarter: 2009Q1

REPORT INFORMATION
  Report Type: 
  Country: None (occurrence: None)
  Receive Date: 20090112
  Receipt Date: 20090106
  Transmission Date: 20090719
  Serious: Yes (Hospitalization)
  Sender: FDA-Public Use
  Company Number: KR-ROXANE LABORATORIES, INC.-2009-RO-00020RO

PATIENT
  Age: 43 Year
  Sex: Male

DRUGS (5)
  1. CILOSTAZOL [Suspect]
     Indication: ANTIPLATELET THERAPY
  2. ASPIRIN [Suspect]
     Indication: ANTIPLATELET THERAPY
  3. CLOPIDOGREL [Suspect]
     Indication: ANTIPLATELET THERAPY
  4. REOPRO [Suspect]
  5. HEPARINIZATION [Suspect]
     Route: 051

REACTIONS (4)
  - DRUG INEFFECTIVE [None]
  - THROMBOSIS IN DEVICE [None]
  - VENTRICULAR FIBRILLATION [None]
  - VENTRICULAR TACHYCARDIA [None]
